FAERS Safety Report 8834702 (Version 4)
Quarter: 2012Q4

REPORT INFORMATION
  Report Type: Report from Study
  Country: CA (occurrence: CA)
  Receive Date: 20121010
  Receipt Date: 20121023
  Transmission Date: 20130627
  Serious: Yes (Hospitalization)
  Sender: FDA-Public Use
  Company Number: CA-ROCHE-1127229

PATIENT
  Age: 43 Year
  Sex: Male
  Weight: 102.15 kg

DRUGS (10)
  1. BEVACIZUMAB [Suspect]
     Indication: GLIOBLASTOMA
     Route: 042
     Dates: start: 20120720
  2. LAMICTAL [Concomitant]
  3. REMERON [Concomitant]
  4. CIPRALEX [Concomitant]
  5. DIPHENHYDRAMINE HCL [Concomitant]
     Indication: PREMEDICATION
     Route: 048
     Dates: start: 20120917, end: 20120917
  6. DIPHENHYDRAMINE HCL [Concomitant]
     Route: 048
     Dates: start: 20121005, end: 20121005
  7. ACETAMINOPHEN [Concomitant]
     Indication: PREMEDICATION
     Route: 048
     Dates: start: 20120917, end: 20120917
  8. ACETAMINOPHEN [Concomitant]
     Route: 048
     Dates: start: 20121005, end: 20121005
  9. METHYLPREDNISOLONE [Concomitant]
     Indication: PREMEDICATION
     Route: 042
     Dates: start: 20120917, end: 20120917
  10. METHYLPREDNISOLONE [Concomitant]
     Route: 042
     Dates: start: 20121005, end: 20121005

REACTIONS (10)
  - Neurological decompensation [Unknown]
  - Brain neoplasm [Unknown]
  - Mobility decreased [Not Recovered/Not Resolved]
  - Platelet count decreased [Unknown]
  - White blood cell count decreased [Unknown]
  - Lymphocyte count decreased [Unknown]
  - Haematocrit decreased [Unknown]
  - Red blood cell count decreased [Unknown]
  - Fatigue [Recovered/Resolved]
  - White blood cell count increased [Recovered/Resolved]
